FAERS Safety Report 7521472-X (Version None)
Quarter: 2011Q2

REPORT INFORMATION
  Report Type: 
  Country: None (occurrence: None)
  Receive Date: 20110603
  Receipt Date: 20101221
  Transmission Date: 20111010
  Serious: Yes (Death, Hospitalization)
  Sender: FDA-Public Use
  Company Number: JP-BAYER-2010-000617

PATIENT
  Age: 54 Year
  Sex: Male
  Weight: 61 kg

DRUGS (12)
  1. DIOVAN [Concomitant]
     Dosage: 80 MG, QD
     Route: 048
     Dates: end: 20101128
  2. SORAFENIB (RAF KINASE INHIBITOR) [Suspect]
     Indication: HEPATIC NEOPLASM MALIGNANT
     Dosage: 800 MG, UNK
     Route: 048
     Dates: start: 20100720, end: 20100726
  3. SORAFENIB (RAF KINASE INHIBITOR) [Suspect]
     Dosage: 200 MG, QD
     Route: 048
     Dates: start: 20101012, end: 20101101
  4. SELBEX [Concomitant]
     Dosage: 150 MG, QD
     Route: 048
     Dates: end: 20101128
  5. FAMOTIDINE [Concomitant]
     Dosage: 40 MG, QD
     Route: 048
     Dates: end: 20101128
  6. RINDERON-VG [Concomitant]
     Dosage: UNK
     Route: 061
     Dates: end: 20101128
  7. SORAFENIB (RAF KINASE INHIBITOR) [Suspect]
     Dosage: 200 MG, QD
     Route: 048
     Dates: start: 20101116, end: 20101128
  8. URSO 250 [Concomitant]
     Dosage: 900 MG, QD
     Route: 048
     Dates: end: 20101128
  9. KERATINAMIN [Concomitant]
     Dosage: UNK
     Route: 061
     Dates: end: 20101128
  10. LANSOPRAZOLE [Concomitant]
     Dosage: 30 MG, QD
     Route: 048
     Dates: end: 20101128
  11. PENTAZOCINE LACTATE [Concomitant]
     Dosage: 25 MG, QD
     Route: 048
     Dates: end: 20101128
  12. SORAFENIB (RAF KINASE INHIBITOR) [Suspect]
     Dosage: 400 MG, QD
     Route: 048
     Dates: start: 20100826, end: 20100921

REACTIONS (3)
  - HEPATIC FUNCTION ABNORMAL [None]
  - PYREXIA [None]
  - BRAIN STEM HAEMORRHAGE [None]
